FAERS Safety Report 23555440 (Version 1)
Quarter: 2024Q1

REPORT INFORMATION
  Report Type: Spontaneous
  Country: US (occurrence: US)
  Receive Date: 20240222
  Receipt Date: 20240222
  Transmission Date: 20240409
  Serious: No
  Sender: FDA-Public Use
  Company Number: US-LANTHEUS-LMI-2023-01287

PATIENT

DRUGS (1)
  1. DEFINITY [Suspect]
     Active Substance: PERFLUTREN
     Indication: Product used for unknown indication
     Dosage: 1 MILLILITRE SLOWLY (DILUTION DETAILS NOT REPORTED)

REACTIONS (2)
  - Pain in jaw [Recovered/Resolved]
  - Back pain [Recovered/Resolved]
